FAERS Safety Report 6648119-9 (Version None)
Quarter: 2010Q1

REPORT INFORMATION
  Report Type: 
  Country: None (occurrence: None)
  Receive Date: 20100319
  Receipt Date: 20100304
  Transmission Date: 20100710
  Serious: Yes (Life-Threatening, Hospitalization)
  Sender: FDA-Public Use
  Company Number: 2010000799

PATIENT
  Age: 69 Year
  Sex: Female

DRUGS (2)
  1. ERLOTINIB (ERLOTINIB) (TABLET) (ERLOTINIB) [Suspect]
     Indication: NON-SMALL CELL LUNG CANCER
     Dosage: (150 MG,QD), ORAL
     Route: 048
     Dates: start: 20090727, end: 20100207
  2. 5-AZACYTIDINE (AZACITIDINE) [Suspect]
     Indication: NON-SMALL CELL LUNG CANCER
     Dosage: (110 MG, DAY 1-4 AND DAY15-18),SUBCUTANEOUS
     Route: 058
     Dates: start: 20090727, end: 20100204

REACTIONS (21)
  - ATRIAL FIBRILLATION [None]
  - BLOOD AMYLASE INCREASED [None]
  - BLOOD PH DECREASED [None]
  - COLLAPSE OF LUNG [None]
  - DEEP VEIN THROMBOSIS [None]
  - FALL [None]
  - HAEMATOCRIT DECREASED [None]
  - HAEMOGLOBIN DECREASED [None]
  - HAEMOPTYSIS [None]
  - HILAR LYMPHADENOPATHY [None]
  - INTERNATIONAL NORMALISED RATIO INCREASED [None]
  - LIPASE INCREASED [None]
  - PCO2 INCREASED [None]
  - PLATELET COUNT INCREASED [None]
  - PLEURAL EFFUSION [None]
  - PO2 INCREASED [None]
  - PULMONARY EMBOLISM [None]
  - PULMONARY MASS [None]
  - RESPIRATORY FAILURE [None]
  - SYNCOPE [None]
  - TRANSIENT ISCHAEMIC ATTACK [None]
